FAERS Safety Report 7969335-X (Version None)
Quarter: 2011Q4

REPORT INFORMATION
  Report Type: 
  Country: None (occurrence: None)
  Receive Date: 20111209
  Receipt Date: 20111130
  Transmission Date: 20120403
  Serious: Yes (Other)
  Sender: FDA-Public Use
  Company Number: US-ASTRAZENECA-2011SE73123

PATIENT
  Age: 71 Year
  Sex: Female

DRUGS (3)
  1. PULMICORT FLEXHALER [Suspect]
     Route: 055
  2. RHINOCORT [Suspect]
     Route: 045
  3. TAMOXIFEN CITRATE [Suspect]
     Route: 048

REACTIONS (5)
  - ADVERSE REACTION [None]
  - DYSPNOEA [None]
  - AUTOIMMUNE DISORDER [None]
  - NEOPLASM MALIGNANT [None]
  - DRUG DOSE OMISSION [None]
